FAERS Safety Report 10064435 (Version 1)
Quarter: 2014Q2

REPORT INFORMATION
  Report Type: Spontaneous
  Country: GT (occurrence: None)
  Receive Date: 20140407
  Receipt Date: 20140407
  Transmission Date: 20141212
  Serious: Yes (Other)
  Sender: FDA-Public Use
  Company Number: None

PATIENT
  Age: 10 Year
  Sex: 0
  Weight: 49.9 kg

DRUGS (1)
  1. LEVITERACETAM [Suspect]
     Indication: CEREBRAL DISORDER
     Dosage: 1/2 PILLS, THREE TIMES DAILY, TAKEN BY MOUTH
     Route: 048

REACTIONS (4)
  - Crying [None]
  - Screaming [None]
  - Hallucination, visual [None]
  - Hallucination, auditory [None]
